FAERS Safety Report 8066490-0 (Version None)
Quarter: 2012Q1

REPORT INFORMATION
  Report Type: 
  Country: None (occurrence: None)
  Receive Date: 20120124
  Receipt Date: 20120120
  Transmission Date: 20120608
  Serious: No
  Sender: FDA-Public Use
  Company Number: US-PFIZER INC-2012017156

PATIENT
  Sex: Female
  Weight: 49.887 kg

DRUGS (2)
  1. AZITHROMYCIN [Suspect]
     Indication: TOOTH ABSCESS
     Dosage: 250 MG, DAILY
     Dates: start: 20120118
  2. MOTRIN [Suspect]
     Dosage: UNK

REACTIONS (6)
  - PAIN [None]
  - DYSPNOEA [None]
  - NASAL CONGESTION [None]
  - HEADACHE [None]
  - INCREASED UPPER AIRWAY SECRETION [None]
  - EAR CONGESTION [None]
